FAERS Safety Report 13386277 (Version 2)
Quarter: 2017Q2

REPORT INFORMATION
  Report Type: Report from Study
  Country: CN (occurrence: CN)
  Receive Date: 20170330
  Receipt Date: 20170414
  Transmission Date: 20170830
  Serious: Yes (Other)
  Sender: FDA-Public Use
  Company Number: CN-ROCHE-1913328

PATIENT
  Age: 61 Year
  Sex: Female
  Weight: 52 kg

DRUGS (1)
  1. ALTEPLASE [Suspect]
     Active Substance: ALTEPLASE
     Indication: ISCHAEMIC STROKE
     Route: 042
     Dates: start: 20100303

REACTIONS (3)
  - Cerebral artery embolism [Unknown]
  - Haemorrhagic transformation stroke [Unknown]
  - Pneumonia [Unknown]

NARRATIVE: CASE EVENT DATE: 20100303
